FAERS Safety Report 15889783 (Version 1)
Quarter: 2019Q1

REPORT INFORMATION
  Report Type: Spontaneous
  Country: US (occurrence: US)
  Receive Date: 20190130
  Receipt Date: 20190130
  Transmission Date: 20190417
  Serious: Yes (Other)
  Sender: FDA-Public Use
  Company Number: None

PATIENT
  Age: 60 Year
  Sex: Female

DRUGS (8)
  1. SYNTHROID 137MCG [Concomitant]
  2. VITAMIN D [Concomitant]
     Active Substance: CHOLECALCIFEROL
  3. HUMALOG [Concomitant]
     Active Substance: INSULIN LISPRO
  4. MAGNESIUM [Concomitant]
     Active Substance: MAGNESIUM
  5. LANTUS [Concomitant]
     Active Substance: INSULIN GLARGINE
  6. BASAGLAR [Suspect]
     Active Substance: INSULIN GLARGINE
     Indication: TYPE 1 DIABETES MELLITUS
     Route: 058
  7. VERAPAMIL ER 180 MG [Concomitant]
  8. LOSARTIN 50 MG [Concomitant]

REACTIONS (4)
  - Palpitations [None]
  - Hypoglycaemia [None]
  - Diabetes mellitus [None]
  - Blood glucose fluctuation [None]

NARRATIVE: CASE EVENT DATE: 20180813
